FAERS Safety Report 11289027 (Version 2)
Quarter: 2015Q3

REPORT INFORMATION
  Report Type: Spontaneous
  Country: US (occurrence: None)
  Receive Date: 20150713
  Receipt Date: 20150724
  Transmission Date: 20151125
  Serious: No
  Sender: FDA-Public Use
  Company Number: US-145664

PATIENT
  Age: 74 Year
  Sex: Female

DRUGS (3)
  1. HEPARIN [Concomitant]
     Active Substance: HEPARIN SODIUM
  2. NOVOLOG [Concomitant]
     Active Substance: INSULIN ASPART
  3. BOTULISM ANTITOXIN [Suspect]
     Active Substance: BOTULISM ANTITOXIN
     Indication: BOTULISM
     Dates: start: 20150423

REACTIONS (4)
  - Acute myocardial infarction [None]
  - Pulmonary oedema [None]
  - Pneumonia aspiration [None]
  - Pneumonia bacterial [None]

NARRATIVE: CASE EVENT DATE: 20150425
